FAERS Safety Report 19912727 (Version 1)
Quarter: 2021Q4

REPORT INFORMATION
  Report Type: Spontaneous
  Country: US (occurrence: US)
  Receive Date: 20211004
  Receipt Date: 20211004
  Transmission Date: 20220303
  Serious: No
  Sender: FDA-Public Use
  Company Number: None

PATIENT
  Age: 63 Year
  Sex: Male

DRUGS (7)
  1. TINACTIN [Suspect]
     Active Substance: TOLNAFTATE
     Indication: Tinea pedis
     Dosage: ?          OTHER STRENGTH:1 SRRAY DAILY;QUANTITY:1 SPRAY(S);OTHER FREQUENCY:1 SPRAY DAILY;
     Route: 061
  2. LISINOPRIL [Concomitant]
     Active Substance: LISINOPRIL
  3. SIMIVASTATIN [Concomitant]
  4. PROGLITIZONE [Concomitant]
  5. ASPIRIN [Concomitant]
     Active Substance: ASPIRIN
  6. METAMORPHIN [Concomitant]
  7. JANUVIA [Concomitant]
     Active Substance: SITAGLIPTIN PHOSPHATE

REACTIONS (1)
  - Drug ineffective [None]

NARRATIVE: CASE EVENT DATE: 20210906
